FAERS Safety Report 8385058-X (Version None)
Quarter: 2012Q2

REPORT INFORMATION
  Report Type: 
  Country: None (occurrence: None)
  Receive Date: 20120524
  Receipt Date: 20120517
  Transmission Date: 20120825
  Serious: Yes (Other)
  Sender: FDA-Public Use
  Company Number: FR-MERCK-1205FRA00080

PATIENT
  Age: 36 Year
  Sex: Male
  Weight: 80 kg

DRUGS (1)
  1. PROPECIA [Suspect]
     Indication: ALOPECIA
     Route: 048
     Dates: start: 20050701, end: 20060701

REACTIONS (4)
  - ERECTILE DYSFUNCTION [None]
  - LIBIDO DISORDER [None]
  - HYPOAESTHESIA [None]
  - PENIS DISORDER [None]
